FAERS Safety Report 7216869-1 (Version None)
Quarter: 2010Q4

REPORT INFORMATION
  Report Type: 
  Country: None (occurrence: None)
  Receive Date: 20101230
  Receipt Date: 20101221
  Transmission Date: 20110411
  Serious: Yes (Other)
  Sender: FDA-Public Use
  Company Number: 2010US004801

PATIENT
  Age: 56 Year
  Sex: Female

DRUGS (5)
  1. AMBISOME [Suspect]
     Indication: FUNGAL INFECTION
     Dosage: 125 MG, UID/QD, IV NOS
     Route: 042
     Dates: start: 20101019, end: 20101024
  2. FUNGUARD (MICAFUNGIN) INJECTION [Concomitant]
  3. FOY (GABEXATE MESILATE) [Concomitant]
  4. INSULIN (INSULIN) [Concomitant]
  5. GASTER (FAMOTIDINE) FORMULATION UNKNOWN [Concomitant]

REACTIONS (2)
  - ATRIOVENTRICULAR BLOCK SECOND DEGREE [None]
  - VOMITING [None]
